FAERS Safety Report 6023761-7 (Version None)
Quarter: 2008Q4

REPORT INFORMATION
  Report Type: 
  Country: None (occurrence: None)
  Receive Date: 20081230
  Receipt Date: 20081219
  Transmission Date: 20090506
  Serious: Yes (Other)
  Sender: FDA-Public Use
  Company Number: US-AMGEN-QUU324832

PATIENT
  Sex: Female

DRUGS (2)
  1. ENBREL [Suspect]
     Indication: RHEUMATOID ARTHRITIS
     Route: 058
     Dates: start: 20071221
  2. PLAQUENIL [Concomitant]

REACTIONS (4)
  - ARTHRALGIA [None]
  - ENDODONTIC PROCEDURE [None]
  - RHEUMATOID ARTHRITIS [None]
  - URETHRAL DILATATION [None]
